FAERS Safety Report 6527377-5 (Version None)
Quarter: 2009Q4

REPORT INFORMATION
  Report Type: 
  Country: None (occurrence: None)
  Receive Date: 20091222
  Receipt Date: 20090925
  Transmission Date: 20100525
  Serious: No
  Sender: FDA-Public Use
  Company Number: ALL1-2009-02918

PATIENT
  Age: 8 Year
  Sex: Female
  Weight: 32.2 kg

DRUGS (2)
  1. VYVANSE [Suspect]
     Indication: ATTENTION DEFICIT/HYPERACTIVITY DISORDER
     Dosage: 30; 20 MG 1X/DAY:QD, ORAL
     Route: 048
     Dates: start: 20081001, end: 20090101
  2. VYVANSE [Suspect]
     Indication: ATTENTION DEFICIT/HYPERACTIVITY DISORDER
     Dosage: 30; 20 MG 1X/DAY:QD, ORAL
     Route: 048
     Dates: start: 20090101

REACTIONS (3)
  - ABNORMAL LOSS OF WEIGHT [None]
  - DERMATILLOMANIA [None]
  - SKIN INFECTION [None]
